FAERS Safety Report 18405863 (Version 1)
Quarter: 2020Q4

REPORT INFORMATION
  Report Type: Report from Study
  Country: US (occurrence: US)
  Receive Date: 20201020
  Receipt Date: 20201020
  Transmission Date: 20210114
  Serious: Yes (Other)
  Sender: FDA-Public Use
  Company Number: US-ULTRAGENYX PHARMACEUTICAL INC.-US-UGNX-20-00175

PATIENT
  Sex: Male
  Weight: 17.1 kg

DRUGS (1)
  1. DOJOLVI [Suspect]
     Active Substance: TRIHEPTANOIN
     Indication: EPILEPSY
     Dosage: 41 ML: 10 ML IN THE MORNING, 10 ML IN MIDDAY, 10 ML IN THE EVENING AND 11 ML AT BEDTIME AS DIRECTED
     Route: 048

REACTIONS (2)
  - Seizure [Unknown]
  - Off label use [Not Recovered/Not Resolved]
